FAERS Safety Report 5384757-1 (Version None)
Quarter: 2007Q3

REPORT INFORMATION
  Report Type: 
  Country: None (occurrence: None)
  Receive Date: 20070711
  Receipt Date: 20070702
  Transmission Date: 20080115
  Serious: Yes (Other)
  Sender: FDA-Public Use
  Company Number: AU-PFIZER INC-2007054860

PATIENT
  Age: 62 Year
  Sex: Female

DRUGS (6)
  1. LIPITOR [Suspect]
  2. SOLPRIN [Concomitant]
  3. PLAVIX [Concomitant]
  4. METOPROLOL SUCCINATE [Concomitant]
  5. TRITACE [Concomitant]
  6. RAMACE [Concomitant]

REACTIONS (3)
  - MUSCLE ATROPHY [None]
  - MYALGIA [None]
  - WEIGHT DECREASED [None]
